FAERS Safety Report 14391743 (Version 1)
Quarter: 2018Q1

REPORT INFORMATION
  Report Type: Report from Study
  Country: DE (occurrence: DE)
  Receive Date: 20180116
  Receipt Date: 20180116
  Transmission Date: 20180509
  Serious: Yes (Death, Life-Threatening, Hospitalization, Other)
  Sender: FDA-Public Use
  Company Number: DE-PFIZER INC-2018015462

PATIENT
  Sex: Female
  Weight: 53 kg

DRUGS (4)
  1. EXEMESTANE. [Suspect]
     Active Substance: EXEMESTANE
     Dosage: 25 MG, QD
     Route: 048
     Dates: start: 20130627, end: 20130711
  2. AFINITOR [Suspect]
     Active Substance: EVEROLIMUS
     Dosage: 10 MG, QD
     Route: 048
     Dates: start: 20130412, end: 20130610
  3. EXEMESTANE. [Suspect]
     Active Substance: EXEMESTANE
     Indication: BREAST CANCER METASTATIC
     Dosage: 25 MG, QD
     Route: 048
     Dates: start: 20130412, end: 20130610
  4. AFINITOR [Suspect]
     Active Substance: EVEROLIMUS
     Indication: BREAST CANCER METASTATIC
     Dosage: 10 MG, QD
     Route: 048
     Dates: start: 20130627, end: 20130711

REACTIONS (12)
  - Somnolence [Fatal]
  - C-reactive protein increased [Fatal]
  - Blood creatinine increased [Fatal]
  - Urine output decreased [Fatal]
  - Pleural effusion [Fatal]
  - Anaemia [Recovered/Resolved]
  - Renal failure [Fatal]
  - General physical health deterioration [Fatal]
  - Ascites [Fatal]
  - Neoplasm progression [Fatal]
  - Multiple organ dysfunction syndrome [Fatal]
  - Dehydration [Unknown]

NARRATIVE: CASE EVENT DATE: 20140724
